FAERS Safety Report 4344074-5 (Version None)
Quarter: 2004Q2

REPORT INFORMATION
  Report Type: 
  Country: None (occurrence: None)
  Receive Date: 20040419
  Receipt Date: 20040408
  Transmission Date: 20050107
  Serious: Yes (Hospitalization)
  Sender: FDA-Public Use
  Company Number: 2004IC000068

PATIENT
  Age: 49 Year
  Sex: Female

DRUGS (7)
  1. 5-FLUOROURACIL (FLUOROURACIL) [Suspect]
     Indication: CERVIX CARCINOMA
     Dosage: 1000 MG; INTRAVENOUS DRIP
     Route: 041
     Dates: start: 20040202, end: 20040205
  2. AQUPLA (NEDAPLATIN) [Suspect]
     Indication: CERVIX CARCINOMA
     Dosage: 130 MG; INTRAVENOUS DRIP
     Route: 041
     Dates: start: 20040202, end: 20040202
  3. URETID (DISTIGMINE BROMIDE) [Suspect]
     Indication: NEUROGENIC BLADDER
     Dosage: 5 MG; ORAL; 15 MG; ORAL;
     Route: 048
     Dates: start: 20040124, end: 20040204
  4. URETID (DISTIGMINE BROMIDE) [Suspect]
     Indication: NEUROGENIC BLADDER
     Dosage: 5 MG; ORAL; 15 MG; ORAL;
     Route: 048
     Dates: start: 20040205, end: 20040205
  5. LOXONIN [Concomitant]
  6. MEPTIN [Concomitant]
  7. CEFZON [Concomitant]

REACTIONS (8)
  - CARDIAC FAILURE CONGESTIVE [None]
  - CHOLINERGIC SYNDROME [None]
  - COMA [None]
  - DRUG INEFFECTIVE [None]
  - DYSPNOEA [None]
  - INTERSTITIAL LUNG DISEASE [None]
  - PLEURAL EFFUSION [None]
  - PULMONARY CONGESTION [None]
